FAERS Safety Report 8786967 (Version 1)
Quarter: 2012Q4

REPORT INFORMATION
  Report Type: 
  Country: US (occurrence: US)
  Receive Date: 20120914
  Receipt Date: 20120914
  Transmission Date: 20130627
  Serious: Yes (Other)
  Sender: FDA-Public Use
  Company Number: US-PFIZER INC-2012227396

PATIENT
  Age: 50 Year
  Sex: Female
  Weight: 58.5 kg

DRUGS (3)
  1. EFFEXOR XR [Suspect]
     Indication: ANXIETY
     Dosage: 37.5 mg, 1x/day
     Route: 048
     Dates: start: 20120823, end: 20120904
  2. EFFEXOR XR [Suspect]
     Dosage: 75 mg, 1x/day
     Route: 048
     Dates: start: 20120905
  3. ATIVAN [Concomitant]
     Indication: ANXIETY
     Dosage: UNK

REACTIONS (1)
  - Pruritus generalised [Not Recovered/Not Resolved]
